FAERS Safety Report 5167950-2 (Version None)
Quarter: 2006Q4

REPORT INFORMATION
  Report Type: 
  Country: None (occurrence: None)
  Receive Date: 20061208
  Receipt Date: 20051107
  Transmission Date: 20070319
  Serious: No
  Sender: FDA-Public Use
  Company Number: US-GLAXOSMITHKLINE-A0581207A

PATIENT
  Age: 41 Year
  Sex: Male

DRUGS (8)
  1. AVANDAMET [Suspect]
     Dosage: 1TAB THREE TIMES PER DAY
     Route: 048
     Dates: end: 20050731
  2. METFORMIN [Concomitant]
  3. ACTOS [Concomitant]
  4. ZOCOR [Concomitant]
  5. TICLOPIDINE [Concomitant]
  6. WELLBUTRIN [Concomitant]
  7. METOPROLOL SUCCINATE [Concomitant]
  8. ABILIFY [Concomitant]

REACTIONS (1)
  - KIDNEY INFECTION [None]
